FAERS Safety Report 10185251 (Version 1)
Quarter: 2014Q2

REPORT INFORMATION
  Report Type: Spontaneous
  Country: US (occurrence: None)
  Receive Date: 20140520
  Receipt Date: 20140520
  Transmission Date: 20141212
  Serious: Yes (Hospitalization)
  Sender: FDA-Public Use
  Company Number: None

PATIENT
  Age: 64 Year
  Sex: Female
  Weight: 68.04 kg

DRUGS (1)
  1. XARELTO 20MG JANSSEN [Suspect]
     Indication: THROMBOSIS
     Route: 048
     Dates: start: 201308

REACTIONS (6)
  - Hypertension [None]
  - Pain [None]
  - Tremor [None]
  - Asthenia [None]
  - Weight decreased [None]
  - Peripheral swelling [None]
